FAERS Safety Report 9718691 (Version 1)
Quarter: 2013Q4

REPORT INFORMATION
  Report Type: Not Available
  Country: US (occurrence: US)
  Receive Date: 20131125
  Receipt Date: 20131125
  Transmission Date: 20140711
  Serious: No
  Sender: FDA-Public Use
  Company Number: US-H. LUNDBECK A/S-DKLU1091960

PATIENT
  Age: 7 Year
  Sex: Male

DRUGS (5)
  1. ONFI [Suspect]
     Indication: MITOCHONDRIAL ENCEPHALOMYOPATHY
     Route: 048
  2. PHENYTOIN [Concomitant]
     Indication: PRODUCT USED FOR UNKNOWN INDICATION
  3. DILANTIN [Concomitant]
     Indication: PRODUCT USED FOR UNKNOWN INDICATION
  4. ZONISAMIDE [Concomitant]
     Indication: PRODUCT USED FOR UNKNOWN INDICATION
  5. KEPPRA [Concomitant]
     Indication: PRODUCT USED FOR UNKNOWN INDICATION

REACTIONS (7)
  - Blister [Unknown]
  - Diarrhoea [Unknown]
  - Lacrimation increased [Unknown]
  - Drooling [Unknown]
  - Tremor [Unknown]
  - Somnolence [Unknown]
  - Constipation [Unknown]
